FAERS Safety Report 25534202 (Version 1)
Quarter: 2025Q3

REPORT INFORMATION
  Report Type: Spontaneous
  Country: EU (occurrence: EU)
  Receive Date: 20250709
  Receipt Date: 20250709
  Transmission Date: 20251020
  Serious: Yes (Hospitalization, Other)
  Sender: AUROBINDO
  Company Number: EU-AFSSAPS-NT2025000612

PATIENT
  Age: 72 Year
  Sex: Female
  Weight: 64 kg

DRUGS (2)
  1. PRASUGREL [Interacting]
     Active Substance: PRASUGREL
     Indication: Coronary arterial stent insertion
     Route: 048
     Dates: start: 2024
  2. KARDEGIC [Suspect]
     Active Substance: ASPIRIN DL-LYSINE
     Indication: Coronary arterial stent insertion
     Dosage: 1 DOSAGE FORM, ONCE A DAY (NR )
     Route: 048
     Dates: start: 2024

REACTIONS (1)
  - Intra-abdominal haemorrhage [Unknown]

NARRATIVE: CASE EVENT DATE: 20250613
